FAERS Safety Report 5266654-5 (Version None)
Quarter: 2007Q1

REPORT INFORMATION
  Report Type: 
  Country: None (occurrence: None)
  Receive Date: 20070312
  Receipt Date: 20070227
  Transmission Date: 20070707
  Serious: Yes (Other)
  Sender: FDA-Public Use
  Company Number: CAP07000102

PATIENT
  Age: 70 Year
  Sex: Female

DRUGS (3)
  1. ACTONEL [Suspect]
     Indication: OSTEOPOROSIS PROPHYLAXIS
     Dosage: 35 MG ONCE WEEKLY, ORAL
     Route: 048
     Dates: start: 20020601, end: 20021201
  2. CALCIUM (CALCIUM) [Concomitant]
  3. VITAMIN D /00107901/ (ERGOCALCIFEROL) [Concomitant]

REACTIONS (1)
  - BREAST CANCER FEMALE [None]
